FAERS Safety Report 18854000 (Version 1)
Quarter: 2021Q1

REPORT INFORMATION
  Report Type: Spontaneous
  Country: US (occurrence: US)
  Receive Date: 20210205
  Receipt Date: 20210205
  Transmission Date: 20210420
  Serious: No
  Sender: FDA-Public Use
  Company Number: US-JNJFOC-20210207102

PATIENT
  Age: 79 Year
  Sex: Female

DRUGS (1)
  1. IMODIUM MULTI?SYMPTOM RELIEF [Suspect]
     Active Substance: DIMETHICONE\LOPERAMIDE HYDROCHLORIDE
     Indication: COLITIS MICROSCOPIC
     Route: 048

REACTIONS (3)
  - Incorrect product administration duration [Unknown]
  - Product packaging difficult to open [Unknown]
  - Product use in unapproved indication [Unknown]
